FAERS Safety Report 7649949-7 (Version None)
Quarter: 2011Q3

REPORT INFORMATION
  Report Type: 
  Country: None (occurrence: None)
  Receive Date: 20110802
  Receipt Date: 20110728
  Transmission Date: 20111222
  Serious: Yes (Congenital Anomaly)
  Sender: FDA-Public Use
  Company Number: CH-BAYER-2011-065533

PATIENT
  Sex: Male
  Weight: 2.72 kg

DRUGS (2)
  1. LORAZEPAM [Suspect]
     Route: 064
  2. ULTRAVIST 150 [Suspect]
     Dosage: UNK
     Route: 064

REACTIONS (3)
  - FOETAL GROWTH RESTRICTION [None]
  - POLYDACTYLY [None]
  - MICROCEPHALY [None]
